FAERS Safety Report 7068374 (Version 2)
Quarter: 2014Q1

REPORT INFORMATION
  Report Type: Spontaneous
  Country: US (occurrence: None)
  Receive Date: 20090724
  Receipt Date: 20140123
  Transmission Date: 20141002
  Serious: Yes (Other)
  Sender: FDA-Public Use
  Company Number: 2009S1005596

PATIENT
  Age: 73 Year
  Sex: Female
  Weight: 81.65 kg

DRUGS (5)
  1. SODIUM PHOSPHATE, DIBASIC\SODIUM PHOSPHATE, MONOBASIC [Suspect]
     Indication: COLONOSCOPY
     Dosage: 90 ML, 2 IN 24 HOURS, ORAL
     Route: 048
     Dates: start: 20080828, end: 20080829
  2. PLENDIL (FELODIPONE)(5 MILLIGRAM, TABLET) [Concomitant]
  3. LEVOTHROID (LEVOTHYROXINE SODIUM) (75 MICROGRAM, TABLET) [Concomitant]
  4. RESTASIS (CICLOSPORIN) (0.05 PERCENT , EYE DROPS EMULSION) [Concomitant]
  5. TYLENOL (PARACETAMOL) (325 MILLIGRAM, TABLET) [Concomitant]

REACTIONS (1)
  - Renal failure [None]
